FAERS Safety Report 7835035-X (Version None)
Quarter: 2011Q4

REPORT INFORMATION
  Report Type: 
  Country: None (occurrence: None)
  Receive Date: 20111020
  Receipt Date: 20111011
  Transmission Date: 20120403
  Serious: Yes (Other)
  Sender: FDA-Public Use
  Company Number: FK201102218

PATIENT
  Age: 34 Year
  Sex: Male

DRUGS (3)
  1. TACROLIMUS [Concomitant]
  2. METHYLPREDNISOLONE [Suspect]
     Indication: STEROID THERAPY
     Dosage: 500 MG, OPERATION AND DAY 1;THEN TAPERED X 1YR, INTRAVENOUS (NOT OTHERWISE SPECIFIED)
     Route: 042
  3. MYCOPHENOLATE MOFETIL [Concomitant]

REACTIONS (7)
  - LIVER TRANSPLANT REJECTION [None]
  - PNEUMONIA [None]
  - PSEUDOMONAS INFECTION [None]
  - BILOMA [None]
  - LUNG ABSCESS [None]
  - BILIARY TRACT DISORDER [None]
  - BRONCHOPULMONARY ASPERGILLOSIS [None]
